FAERS Safety Report 23580524 (Version 12)
Quarter: 2024Q4

REPORT INFORMATION
  Report Type: Spontaneous
  Country: US (occurrence: US)
  Receive Date: 20240229
  Receipt Date: 20241202
  Transmission Date: 20250114
  Serious: Yes (Hospitalization)
  Sender: CALLIDITAS THERAPEUTICS AB
  Company Number: US-Calliditas-2024CAL00302

PATIENT
  Age: 52 Year
  Sex: Male

DRUGS (18)
  1. TARPEYO [Suspect]
     Active Substance: BUDESONIDE
     Indication: Haematuria
     Route: 048
     Dates: start: 20231223
  2. CLONIDINE [Concomitant]
     Active Substance: CLONIDINE
  3. HYDRALAZINE [Concomitant]
     Active Substance: HYDRALAZINE HYDROCHLORIDE
  4. LISINOPRIL [Concomitant]
     Active Substance: LISINOPRIL
  5. NIFEDIPINE [Concomitant]
     Active Substance: NIFEDIPINE
  6. ACETAMINOPHEN [Concomitant]
     Active Substance: ACETAMINOPHEN
  7. ALLOPURINOL [Concomitant]
     Active Substance: ALLOPURINOL
  8. AMLODIPINE [Concomitant]
     Active Substance: AMLODIPINE BESYLATE
  9. ABILIFY [Concomitant]
     Active Substance: ARIPIPRAZOLE
  10. BUSPAR [Concomitant]
     Active Substance: BUSPIRONE HYDROCHLORIDE
  11. COREG [Concomitant]
     Active Substance: CARVEDILOL
  12. CHOLECALCIFEROL [Concomitant]
     Active Substance: CHOLECALCIFEROL
  13. COLACE [Concomitant]
     Active Substance: DOCUSATE SODIUM
  14. FERROUS SULFATE;VITAMINS NOS [Concomitant]
  15. FARXIGA [Concomitant]
     Active Substance: DAPAGLIFLOZIN PROPANEDIOL
  16. GABAPENTIN [Concomitant]
     Active Substance: GABAPENTIN
  17. PREDNISONE [Concomitant]
     Active Substance: PREDNISONE
  18. ALDACTONE [Concomitant]
     Active Substance: SPIRONOLACTONE

REACTIONS (12)
  - Cellulitis [Not Recovered/Not Resolved]
  - Hypertensive urgency [Not Recovered/Not Resolved]
  - Inappropriate schedule of product administration [Unknown]
  - Product dose omission issue [Unknown]
  - Sepsis [Recovered/Resolved]
  - Encephalopathy [Recovered/Resolved]
  - Living in residential institution [Recovered/Resolved]
  - Dialysis [Recovered/Resolved]
  - Gait inability [Not Recovered/Not Resolved]
  - Malaise [Recovered/Resolved]
  - Blood creatinine increased [Unknown]
  - Renal failure [Unknown]

NARRATIVE: CASE EVENT DATE: 20241004
